FAERS Safety Report 5898586-3 (Version None)
Quarter: 2008Q3

REPORT INFORMATION
  Report Type: 
  Country: None (occurrence: None)
  Receive Date: 20080925
  Receipt Date: 20080211
  Transmission Date: 20090109
  Serious: No
  Sender: FDA-Public Use
  Company Number: A0708704A

PATIENT
  Age: 44 Year
  Sex: Female

DRUGS (2)
  1. WELLBUTRIN XL [Suspect]
     Indication: DRUG USE FOR UNKNOWN INDICATION
     Dosage: 150MG PER DAY
     Route: 048
     Dates: start: 20070901
  2. LIPITOR [Concomitant]

REACTIONS (4)
  - CONSTIPATION [None]
  - IRRITABILITY [None]
  - MUSCLE TWITCHING [None]
  - SOMNOLENCE [None]
